FAERS Safety Report 4744770-1 (Version None)
Quarter: 2005Q3

REPORT INFORMATION
  Report Type: 
  Country: None (occurrence: None)
  Receive Date: 20050812
  Receipt Date: 20050812
  Transmission Date: 20060218
  Serious: Yes (Death)
  Sender: FDA-Public Use
  Company Number: None

PATIENT
  Sex: Male
  Weight: 81.3 kg

DRUGS (2)
  1. GEMCITABINE [Suspect]
     Indication: RENAL CELL CARCINOMA STAGE UNSPECIFIED
     Dosage: SEE IMAGE
     Route: 042
     Dates: start: 20050706, end: 20050720
  2. CAPECITABINE [Suspect]
     Dosage: SEE IMAGE
     Route: 048
     Dates: start: 20050706, end: 20050725

REACTIONS (4)
  - CARDIAC DISORDER [None]
  - DISEASE PROGRESSION [None]
  - DYSPNOEA [None]
  - MASS [None]
